FAERS Safety Report 4330688-5 (Version None)
Quarter: 2004Q2

REPORT INFORMATION
  Report Type: 
  Country: None (occurrence: None)
  Receive Date: 20040401
  Receipt Date: 20040401
  Transmission Date: 20050107
  Serious: No
  Sender: FDA-Public Use
  Company Number: None

PATIENT
  Age: 52 Year
  Sex: Male

DRUGS (10)
  1. AZITHROMYCIN [Suspect]
     Indication: LUNG DISORDER
     Dosage: 250 MG PO
     Route: 048
     Dates: start: 20040112, end: 20040117
  2. DIAZEPAM [Concomitant]
  3. GABAPENTIN [Concomitant]
  4. DIPHENHYDRAMINE HCL [Concomitant]
  5. CODEINE 30 MG/APAP [Concomitant]
  6. INSULIN 70/30 NOVOLIN HUMAN [Concomitant]
  7. HUMULIN R [Concomitant]
  8. CARBAMAZEPINE [Concomitant]
  9. PREDNISONE [Concomitant]
  10. ALBUTEROL [Concomitant]

REACTIONS (1)
  - BACTERIA STOOL IDENTIFIED [None]
